FAERS Safety Report 7319401-7 (Version None)
Quarter: 2011Q1

REPORT INFORMATION
  Report Type: 
  Country: None (occurrence: None)
  Receive Date: 20110228
  Receipt Date: 20100224
  Transmission Date: 20110831
  Serious: No
  Sender: FDA-Public Use
  Company Number: A0848714A

PATIENT
  Age: 45 Year
  Sex: Female

DRUGS (10)
  1. WELLBUTRIN [Concomitant]
     Route: 048
     Dates: start: 20080101
  2. PROVIGIL [Concomitant]
     Dates: start: 20060101
  3. LAMICTAL [Suspect]
     Indication: DEPRESSION
     Dosage: 100MG AT NIGHT
     Route: 048
     Dates: start: 20070101
  4. FENTANYL [Suspect]
     Indication: BACK PAIN
     Dosage: 1PAT AS DIRECTED
     Route: 062
     Dates: start: 20100107
  5. TRAZODONE HCL [Suspect]
     Indication: DEPRESSION
     Dosage: 50MG AT NIGHT
     Route: 048
     Dates: start: 20080101
  6. ADVAIR DISKUS 100/50 [Suspect]
     Indication: ASTHMA
     Route: 055
     Dates: start: 20070101
  7. ZANAFLEX [Suspect]
     Indication: PAIN
     Dosage: 2MG AS REQUIRED
     Route: 048
     Dates: start: 20091222
  8. PROAIR HFA [Suspect]
     Indication: ASTHMA
     Dosage: 2PUFF FOUR TIMES PER DAY
     Route: 055
     Dates: start: 20070101
  9. VALPROATE SODIUM [Suspect]
     Indication: MIGRAINE
     Dosage: 1000MG AT NIGHT
     Route: 048
     Dates: start: 20070101
  10. LOVASTATIN [Suspect]
     Indication: BLOOD CHOLESTEROL ABNORMAL
     Dosage: 20MG AT NIGHT
     Route: 048
     Dates: start: 20090801

REACTIONS (12)
  - FACIAL PAIN [None]
  - SINUS CONGESTION [None]
  - COORDINATION ABNORMAL [None]
  - MALAISE [None]
  - ERYTHEMA [None]
  - VOMITING [None]
  - DRUG INEFFECTIVE [None]
  - DRY MOUTH [None]
  - BURNING SENSATION [None]
  - FATIGUE [None]
  - DYSPNOEA [None]
  - TREMOR [None]
